FAERS Safety Report 9766444 (Version 1)
Quarter: 2013Q4

REPORT INFORMATION
  Report Type: Spontaneous
  Country: US (occurrence: US)
  Receive Date: 20131217
  Receipt Date: 20131217
  Transmission Date: 20140711
  Serious: No
  Sender: FDA-Public Use
  Company Number: US-GLAXOSMITHKLINE-A1028470A

PATIENT
  Age: 57 Year
  Sex: Male
  Weight: 83.6 kg

DRUGS (9)
  1. VOTRIENT [Suspect]
     Indication: RENAL CELL CARCINOMA
     Dosage: 800MG PER DAY
     Route: 048
     Dates: start: 20130325
  2. BABY ASPIRIN [Concomitant]
  3. FISH OIL [Concomitant]
  4. GLIMEPIRIDE [Concomitant]
  5. LEVEMIR [Concomitant]
  6. LISINOPRIL [Concomitant]
  7. LOVASTATIN [Concomitant]
  8. NOVOLOG [Concomitant]
  9. VITAMIN B [Concomitant]

REACTIONS (8)
  - Vitreous floaters [Not Recovered/Not Resolved]
  - Hair colour changes [Not Recovered/Not Resolved]
  - Skin disorder [Not Recovered/Not Resolved]
  - Dry skin [Not Recovered/Not Resolved]
  - Palmar-plantar erythrodysaesthesia syndrome [Recovering/Resolving]
  - Fatigue [Not Recovered/Not Resolved]
  - Diarrhoea [Not Recovered/Not Resolved]
  - Food allergy [Not Recovered/Not Resolved]
